FAERS Safety Report 13031107 (Version 1)
Quarter: 2016Q4

REPORT INFORMATION
  Report Type: Other
  Country: None (occurrence: US)
  Receive Date: 20161215
  Receipt Date: 20161215
  Transmission Date: 20170207
  Serious: Yes (Other)
  Sender: FDA-Public Use
  Company Number: US-GUTHY-RENKER LLC-1060863

PATIENT
  Age: 41 Year
  Sex: Female

DRUGS (3)
  1. IT COSMETICS BYE BYE FOUNDATION WITH SPF 50+ [Suspect]
     Active Substance: TITANIUM DIOXIDE\ZINC OXIDE
     Indication: PROPHYLAXIS AGAINST SOLAR RADIATION
     Route: 061
     Dates: start: 20161202
  2. ALBUTEROL, SINGULAIR, ADVAIR, FLONASE, CELEXA, LEVOTHYROXINE [Concomitant]
  3. BENADRYL PRN, PREDNISONE PRN, ALBUTEROL NEBULIZER PRN, EPIPEN [Concomitant]

REACTIONS (1)
  - Urticaria [Recovering/Resolving]

NARRATIVE: CASE EVENT DATE: 20161202
